FAERS Safety Report 19032875 (Version 1)
Quarter: 2021Q1

REPORT INFORMATION
  Report Type: Spontaneous
  Country: US (occurrence: US)
  Receive Date: 20210319
  Receipt Date: 20210319
  Transmission Date: 20210420
  Serious: Yes (Hospitalization)
  Sender: FDA-Public Use
  Company Number: US-MYLANLABS-2021M1016053

PATIENT
  Age: 48 Year
  Sex: Male

DRUGS (10)
  1. CLONAZEPAM. [Suspect]
     Active Substance: CLONAZEPAM
     Indication: PRODUCT USED FOR UNKNOWN INDICATION
     Dosage: 120 MILLIGRAM
     Route: 065
  2. PARACETAMOL [Suspect]
     Active Substance: ACETAMINOPHEN
     Indication: PRODUCT USED FOR UNKNOWN INDICATION
     Dosage: 4875 MILLIGRAM
     Route: 065
  3. FLUMAZENIL. [Suspect]
     Active Substance: FLUMAZENIL
     Indication: TOXICITY TO VARIOUS AGENTS
     Dosage: 0.1 MILLIGRAM
  4. FLUMAZENIL. [Suspect]
     Active Substance: FLUMAZENIL
     Dosage: 0.1 MILLIGRAM, QH
  5. HYDROCODONE [Suspect]
     Active Substance: HYDROCODONE
     Indication: PRODUCT USED FOR UNKNOWN INDICATION
     Dosage: 75 MILLIGRAM
     Route: 065
  6. NALOXONE [Suspect]
     Active Substance: NALOXONE
     Indication: TOXICITY TO VARIOUS AGENTS
     Dosage: 0.4 MILLIGRAM
  7. NALOXONE [Suspect]
     Active Substance: NALOXONE
     Dosage: 1 MILLIGRAM
  8. FLUMAZENIL. [Suspect]
     Active Substance: FLUMAZENIL
     Dosage: AN ATTEMPTS OF DOSE REDUCTION ON THE THIRD, FOURTH AND FIFTH DAYS FOLLOWING INITIATION
  9. NALOXONE [Suspect]
     Active Substance: NALOXONE
     Dosage: 1 MILLIGRAM, QH
  10. NALOXONE [Suspect]
     Active Substance: NALOXONE
     Dosage: AN ATTEMPT OF DOSE REDUCTION AFTER 12 HOURS WAS MADE

REACTIONS (4)
  - Toxicity to various agents [Recovered/Resolved]
  - Drug withdrawal syndrome [Recovered/Resolved]
  - Intentional overdose [Recovered/Resolved]
  - Drug ineffective [Unknown]
